FAERS Safety Report 7897184-X (Version None)
Quarter: 2011Q4

REPORT INFORMATION
  Report Type: 
  Country: None (occurrence: None)
  Receive Date: 20111028
  Receipt Date: 20111028
  Transmission Date: 20120403
  Serious: Yes (Hospitalization)
  Sender: FDA-Public Use
  Company Number: SPV1-2011-00783

PATIENT
  Age: 8 Year
  Sex: Female
  Weight: 23.6 kg

DRUGS (8)
  1. FLOVENT [Concomitant]
  2. INTUNIV [Suspect]
     Indication: ATTENTION DEFICIT/HYPERACTIVITY DISORDER
     Dosage: 2 MG, 1X/DAY: QD ORAL; 3  MG, 1X/DAY: QD ORAL
     Route: 046
     Dates: start: 20110421, end: 20110428
  3. INTUNIV [Suspect]
     Indication: ATTENTION DEFICIT/HYPERACTIVITY DISORDER
     Dosage: 2 MG, 1X/DAY: QD ORAL; 3  MG, 1X/DAY: QD ORAL
     Route: 046
     Dates: start: 20110430, end: 20110503
  4. VYVANSE [Suspect]
     Indication: ATTENTION DEFICIT/HYPERACTIVITY DISORDER
     Dosage: 30 MG 1X/DAY: QD ORAL;20 MG 1X/DAY: QD ORAL
     Route: 047
     Dates: start: 20100205, end: 20110503
  5. VYVANSE [Suspect]
     Indication: ATTENTION DEFICIT/HYPERACTIVITY DISORDER
     Dosage: 30 MG 1X/DAY: QD ORAL;20 MG 1X/DAY: QD ORAL
     Route: 047
     Dates: start: 20091105, end: 20100204
  6. MELATONIN (MELATONIN) [Concomitant]
  7. SINGULAIR [Concomitant]
  8. CLONIDINE [Concomitant]

REACTIONS (5)
  - SYNCOPE [None]
  - DIZZINESS [None]
  - SEDATION [None]
  - HEAD INJURY [None]
  - CONVULSION [None]
